FAERS Safety Report 24544024 (Version 1)
Quarter: 2024Q4

REPORT INFORMATION
  Report Type: Spontaneous
  Country: US (occurrence: US)
  Receive Date: 20241024
  Receipt Date: 20241024
  Transmission Date: 20250114
  Serious: Yes (Other)
  Sender: Kenvue
  Company Number: US-KENVUE CANADA INC.-20241030129

PATIENT
  Sex: Female

DRUGS (4)
  1. BENADRYL [Suspect]
     Active Substance: DIPHENHYDRAMINE HYDROCHLORIDE
     Indication: Urticaria
     Dosage: UNK
     Route: 065
  2. BENADRYL [Suspect]
     Active Substance: DIPHENHYDRAMINE HYDROCHLORIDE
     Indication: Pruritus
  3. IBUPROFEN [Suspect]
     Active Substance: IBUPROFEN
     Indication: Pain
     Route: 065
  4. IBUPROFEN [Suspect]
     Active Substance: IBUPROFEN
     Indication: Pruritus

REACTIONS (3)
  - Cardiac failure congestive [Unknown]
  - Illness [Unknown]
  - Product use in unapproved indication [Unknown]
